FAERS Safety Report 12952636 (Version 2)
Quarter: 2018Q2

REPORT INFORMATION
  Report Type: Spontaneous
  Country: US (occurrence: US)
  Receive Date: 20161117
  Receipt Date: 20180515
  Transmission Date: 20180711
  Serious: No
  Sender: FDA-Public Use
  Company Number: US-SA-2016SA190739

PATIENT
  Age: 73 Year
  Sex: Female

DRUGS (5)
  1. TOUJEO [Suspect]
     Active Substance: INSULIN GLARGINE
     Indication: TYPE 2 DIABETES MELLITUS
     Dosage: DOSE:30 UNIT(S)
     Route: 065
     Dates: start: 201609, end: 201609
  2. VALIUM [Concomitant]
     Active Substance: DIAZEPAM
  3. LANTUS [Concomitant]
     Active Substance: INSULIN GLARGINE
     Dosage: DOSE :100 UNITS
  4. SOLOSTAR [Concomitant]
     Active Substance: DEVICE
     Dates: start: 201609, end: 201609
  5. HALCION [Concomitant]
     Active Substance: TRIAZOLAM

REACTIONS (1)
  - Psychomotor hyperactivity [Unknown]

NARRATIVE: CASE EVENT DATE: 201609
